FAERS Safety Report 6303268-X (Version None)
Quarter: 2009Q3

REPORT INFORMATION
  Report Type: 
  Country: None (occurrence: None)
  Receive Date: 20090810
  Receipt Date: 20090415
  Transmission Date: 20100115
  Serious: No
  Sender: FDA-Public Use
  Company Number: A0778943A

PATIENT
  Sex: Male

DRUGS (2)
  1. PAROXETINE HCL [Suspect]
     Dosage: 25MG PER DAY
     Route: 048
  2. UNKNOWN [Concomitant]

REACTIONS (2)
  - DYSURIA [None]
  - EJACULATION DISORDER [None]
